FAERS Safety Report 12225323 (Version 1)
Quarter: 2016Q1

REPORT INFORMATION
  Report Type: Spontaneous
  Country: US (occurrence: US)
  Receive Date: 20160331
  Receipt Date: 20160331
  Transmission Date: 20160526
  Serious: No
  Sender: FDA-Public Use
  Company Number: US-GLAXOSMITHKLINE-US2016GSK040775

PATIENT
  Sex: Female

DRUGS (2)
  1. SUMATRIPTAN. [Suspect]
     Active Substance: SUMATRIPTAN
     Indication: MIGRAINE
  2. IMITREX [Suspect]
     Active Substance: SUMATRIPTAN SUCCINATE
     Indication: MIGRAINE

REACTIONS (6)
  - Therapeutic response changed [Unknown]
  - Metabolic disorder [Unknown]
  - Vomiting [Unknown]
  - Product substitution issue [Unknown]
  - Product physical issue [Unknown]
  - Drug ineffective [Unknown]
